FAERS Safety Report 4796264-5 (Version None)
Quarter: 2005Q4

REPORT INFORMATION
  Report Type: 
  Country: None (occurrence: None)
  Receive Date: 20051007
  Receipt Date: 20050926
  Transmission Date: 20060501
  Serious: Yes (Hospitalization, Other)
  Sender: FDA-Public Use
  Company Number: 2005134669

PATIENT
  Age: 34 Year
  Sex: Female
  Weight: 56.246 kg

DRUGS (6)
  1. ZOLOFT [Suspect]
     Indication: DEPRESSION POSTOPERATIVE
     Dosage: 25 MG (25 MG, 1 IN 1D), ORAL
     Route: 048
     Dates: start: 20050601, end: 20050601
  2. WARFARIN SODIUM [Suspect]
     Indication: PULMONARY EMBOLISM
     Dosage: (1 IN 1 D), ORAL
     Route: 048
     Dates: start: 20050501
  3. LOVENOX [Concomitant]
     Indication: PULMONARY EMBOLISM
     Dates: start: 20050501
  4. PHENOBARBITAL TAB [Concomitant]
  5. LAMICTAL [Concomitant]
  6. BENADRYL [Concomitant]

REACTIONS (3)
  - DEHYDRATION [None]
  - INTERNATIONAL NORMALISED RATIO FLUCTUATION [None]
  - LOSS OF CONSCIOUSNESS [None]
